FAERS Safety Report 26038209 (Version 1)
Quarter: 2025Q4

REPORT INFORMATION
  Report Type: Spontaneous
  Country: US (occurrence: US)
  Receive Date: 20251113
  Receipt Date: 20251113
  Transmission Date: 20260117
  Serious: Yes (Hospitalization, Other)
  Sender: BRISTOL-MYERS SQUIBB COMPANY
  Company Number: US-BRISTOL-MYERS SQUIBB COMPANY-2025-153610

PATIENT
  Sex: Male

DRUGS (2)
  1. ELIQUIS [Suspect]
     Active Substance: APIXABAN
     Indication: Product used for unknown indication
  2. XTANDI [Suspect]
     Active Substance: ENZALUTAMIDE
     Indication: Prostate cancer metastatic
     Dosage: 160 MILLIGRAM(S), 1 IN 1 DAY
     Route: 048
     Dates: start: 20230302

REACTIONS (7)
  - Atrial fibrillation [Unknown]
  - Barrett^s oesophagus [Unknown]
  - Haematochezia [Unknown]
  - Fracture [Unknown]
  - Malignant neoplasm progression [Unknown]
  - Pulmonary embolism [Unknown]
  - Rectal haemorrhage [Unknown]
